FAERS Safety Report 4291679-6 (Version None)
Quarter: 2004Q1

REPORT INFORMATION
  Report Type: 
  Country: None (occurrence: None)
  Receive Date: 20040210
  Receipt Date: 20040210
  Transmission Date: 20041129
  Serious: Yes (Other)
  Sender: FDA-Public Use
  Company Number: None

PATIENT
  Age: 3 Month
  Sex: Female
  Weight: 8.1647 kg

DRUGS (3)
  1. DIFLUCAN [Suspect]
     Indication: CANDIDIASIS
     Dosage: 25 MG ONCE DAILY ORAL
     Route: 048
     Dates: start: 20040205, end: 20040207
  2. PREDNISONE [Concomitant]
  3. ZANTAC [Concomitant]

REACTIONS (1)
  - MEDICATION ERROR [None]
